FAERS Safety Report 4873036-4 (Version None)
Quarter: 2005Q4

REPORT INFORMATION
  Report Type: 
  Country: None (occurrence: None)
  Receive Date: 20051201
  Receipt Date: 20050815
  Transmission Date: 20060501
  Serious: No
  Sender: FDA-Public Use
  Company Number: 2005PV001224

PATIENT
  Age: 63 Year
  Sex: Female
  Weight: 98.8842 kg

DRUGS (11)
  1. BYETTA [Suspect]
     Indication: DIABETES MELLITUS NON-INSULIN-DEPENDENT
     Dosage: 5 MCG; BID; SC
     Route: 058
     Dates: start: 20050815
  2. LANTUS [Concomitant]
  3. NOVOLOG [Concomitant]
  4. METFORMIN [Concomitant]
  5. GLIPIZIDE [Concomitant]
  6. AVANDIA [Concomitant]
  7. ZOCOR [Concomitant]
  8. ZESTRIL [Concomitant]
  9. DILTIAZEM HCL [Concomitant]
  10. PROMETRIUM [Concomitant]
  11. ESTRATEST [Concomitant]

REACTIONS (4)
  - BLOOD GLUCOSE INCREASED [None]
  - FEELING ABNORMAL [None]
  - FEELING HOT [None]
  - PARAESTHESIA [None]
